FAERS Safety Report 6534247-5 (Version None)
Quarter: 2010Q1

REPORT INFORMATION
  Report Type: 
  Country: None (occurrence: None)
  Receive Date: 20100112
  Receipt Date: 20100104
  Transmission Date: 20100710
  Serious: Yes (Hospitalization, Other)
  Sender: FDA-Public Use
  Company Number: CA-JNJFOC-20100100305

PATIENT
  Age: 26 Year
  Sex: Male

DRUGS (3)
  1. INFLIXIMAB [Suspect]
     Indication: CROHN'S DISEASE
     Route: 042
  2. MERCAPTOPURINE [Concomitant]
     Indication: CROHN'S DISEASE
  3. PREDNISONE [Concomitant]

REACTIONS (5)
  - ACUTE RESPIRATORY DISTRESS SYNDROME [None]
  - LEGIONELLA INFECTION [None]
  - NOSOCOMIAL INFECTION [None]
  - RENAL TUBULAR NECROSIS [None]
  - RESPIRATORY FAILURE [None]
